FAERS Safety Report 25894603 (Version 3)
Quarter: 2025Q4

REPORT INFORMATION
  Report Type: Spontaneous
  Country: JP (occurrence: JP)
  Receive Date: 20251008
  Receipt Date: 20251117
  Transmission Date: 20260118
  Serious: Yes (Other)
  Sender: UCB
  Company Number: JP-UCBJ-CD202513250UCBPHAPROD

PATIENT
  Age: 26 Year

DRUGS (12)
  1. LEVETIRACETAM [Suspect]
     Active Substance: LEVETIRACETAM
     Indication: Product used for unknown indication
     Dosage: 1000 MILLIGRAM
  2. LEVETIRACETAM [Suspect]
     Active Substance: LEVETIRACETAM
     Indication: Product used for unknown indication
     Dosage: UNK
  3. VIMPAT [Suspect]
     Active Substance: LACOSAMIDE
     Indication: Product used for unknown indication
     Dosage: 200 MILLIGRAM
  4. VIMPAT [Suspect]
     Active Substance: LACOSAMIDE
     Dosage: 100 MILLIGRAM
  5. VIMPAT [Suspect]
     Active Substance: LACOSAMIDE
     Dosage: 200 MILLIGRAM
  6. VIMPAT [Suspect]
     Active Substance: LACOSAMIDE
     Dosage: 400 MILLIGRAM
  7. PERAMPANEL [Suspect]
     Active Substance: PERAMPANEL
     Indication: Product used for unknown indication
     Dosage: 2 MILLIGRAM
  8. PERAMPANEL [Suspect]
     Active Substance: PERAMPANEL
     Dosage: 4 MILLIGRAM
  9. PERAMPANEL [Suspect]
     Active Substance: PERAMPANEL
     Dosage: 6 MILLIGRAM
  10. PERAMPANEL [Suspect]
     Active Substance: PERAMPANEL
     Dosage: 8 MILLIGRAM
  11. VALPROATE SODIUM [Concomitant]
     Active Substance: VALPROATE SODIUM
     Indication: Product used for unknown indication
     Dosage: UNK
  12. CARBAMAZEPINE [Concomitant]
     Active Substance: CARBAMAZEPINE
     Indication: Product used for unknown indication
     Dosage: UNK

REACTIONS (9)
  - Suicidal ideation [Unknown]
  - Hallucination [Unknown]
  - Hallucination, auditory [Unknown]
  - Delusion [Unknown]
  - Irritability [Unknown]
  - Suspiciousness [Unknown]
  - Negativism [Unknown]
  - Anxiety [Unknown]
  - Lacrimation increased [Unknown]
